FAERS Safety Report 17237975 (Version 1)
Quarter: 2020Q1

REPORT INFORMATION
  Report Type: Spontaneous
  Country: US (occurrence: US)
  Receive Date: 20200106
  Receipt Date: 20200106
  Transmission Date: 20200409
  Serious: No
  Sender: FDA-Public Use
  Company Number: US-PACIRA-201900032

PATIENT

DRUGS (2)
  1. EXPAREL [Suspect]
     Active Substance: BUPIVACAINE
     Indication: SURGERY
     Dosage: 266 MG, SINGLE, FREQUENCY : SINGLE
     Route: 065
  2. MARCAINE [Suspect]
     Active Substance: BUPIVACAINE HYDROCHLORIDE
     Indication: SURGERY
     Dosage: 30 ML, SINGLE, FREQUENCY : SINGLE
     Route: 065

REACTIONS (2)
  - Labelled drug-drug interaction medication error [Not Recovered/Not Resolved]
  - No adverse event [Unknown]
